FAERS Safety Report 15933072 (Version 1)
Quarter: 2019Q1

REPORT INFORMATION
  Report Type: Spontaneous
  Country: US (occurrence: US)
  Receive Date: 20190207
  Receipt Date: 20190207
  Transmission Date: 20190417
  Serious: No
  Sender: FDA-Public Use
  Company Number: US-KYOWAKIRIN-2018BKK011702

PATIENT

DRUGS (1)
  1. CRYSVITA [Suspect]
     Active Substance: BUROSUMAB-TWZA
     Indication: HEREDITARY HYPOPHOSPHATAEMIC RICKETS
     Dosage: 15 MG (0.75 ML), 1X/2 WEEKS
     Route: 058
     Dates: start: 20181024

REACTIONS (6)
  - Dry skin [Unknown]
  - Injection site rash [Recovering/Resolving]
  - Skin discolouration [Unknown]
  - Incorrect dose administered [Not Recovered/Not Resolved]
  - Injection site pruritus [Unknown]
  - Rash generalised [Recovering/Resolving]

NARRATIVE: CASE EVENT DATE: 2018
